FAERS Safety Report 10837759 (Version 1)
Quarter: 2015Q1

REPORT INFORMATION
  Report Type: Spontaneous
  Country: US (occurrence: US)
  Receive Date: 20150219
  Receipt Date: 20150219
  Transmission Date: 20150721
  Serious: No
  Sender: FDA-Public Use
  Company Number: US-GLAXOSMITHKLINE-US2015000734

PATIENT
  Sex: Female

DRUGS (1)
  1. VENTOLIN HFA [Suspect]
     Active Substance: ALBUTEROL SULFATE
     Indication: FATIGUE
     Dosage: 1 PUFF(S), 1D
     Route: 055
     Dates: start: 201412

REACTIONS (2)
  - Therapeutic response unexpected [Unknown]
  - Throat irritation [Not Recovered/Not Resolved]
